FAERS Safety Report 24116864 (Version 1)
Quarter: 2024Q3

REPORT INFORMATION
  Report Type: Spontaneous
  Country: BR (occurrence: BR)
  Receive Date: 20240722
  Receipt Date: 20240722
  Transmission Date: 20241017
  Serious: Yes (Other)
  Sender: ROCHE
  Company Number: BR-002147023-NVSC2024BR081673

PATIENT
  Age: 30 Year
  Sex: Female
  Weight: 63 kg

DRUGS (3)
  1. XOLAIR [Suspect]
     Active Substance: OMALIZUMAB
     Indication: Asthma
     Dosage: 450 MG (EVERY 15 DAYS, IN AN BOTTLE-AMPOULE)
     Route: 050
     Dates: start: 20231219, end: 20240314
  2. ALENIA [Concomitant]
     Indication: Asthma
     Dosage: UNK, TID (POWDER)
     Route: 050
     Dates: start: 2017
  3. BECLOMETHASONE DIPROPIONATE [Concomitant]
     Active Substance: BECLOMETHASONE DIPROPIONATE
     Indication: Asthma
     Dosage: UNK, BID (POWDER)
     Route: 050
     Dates: start: 2004

REACTIONS (11)
  - Head discomfort [Recovered/Resolved]
  - Ocular discomfort [Recovered/Resolved]
  - Eye haemorrhage [Recovered/Resolved]
  - Ocular hyperaemia [Recovered/Resolved]
  - Asthenia [Recovered/Resolved]
  - Tremor [Recovered/Resolved]
  - Fatigue [Recovered/Resolved]
  - Headache [Recovered/Resolved]
  - Skin burning sensation [Recovered/Resolved]
  - Abdominal pain upper [Recovered/Resolved]
  - Erythema [Recovered/Resolved]

NARRATIVE: CASE EVENT DATE: 20240314
